FAERS Safety Report 12254480 (Version 1)
Quarter: 2016Q2

REPORT INFORMATION
  Report Type: Spontaneous
  Country: SE (occurrence: SE)
  Receive Date: 20160411
  Receipt Date: 20160411
  Transmission Date: 20160815
  Serious: Yes (Hospitalization)
  Sender: FDA-Public Use
  Company Number: SE-PFIZER INC-2016199208

PATIENT
  Age: 62 Year
  Sex: Female

DRUGS (4)
  1. ATENOLOL NYCOMED [Concomitant]
     Dosage: UNK
  2. FELODIPIN ACTAVIS [Concomitant]
     Dosage: UNK
  3. OESTRING [Suspect]
     Active Substance: ESTRADIOL
     Indication: VULVOVAGINAL DRYNESS
     Dosage: 1 DF, EVERY 3 MONTHS
     Dates: start: 20150907
  4. ENALAPRIL COMP RATIOPHARM [Concomitant]
     Active Substance: ENALAPRIL
     Dosage: UNK

REACTIONS (1)
  - Pulmonary embolism [Unknown]

NARRATIVE: CASE EVENT DATE: 20151115
